FAERS Safety Report 7432770-2 (Version None)
Quarter: 2011Q2

REPORT INFORMATION
  Report Type: 
  Country: None (occurrence: None)
  Receive Date: 20110422
  Receipt Date: 20110415
  Transmission Date: 20111010
  Serious: Yes (Hospitalization)
  Sender: FDA-Public Use
  Company Number: B0693881B

PATIENT
  Sex: Male
  Weight: 81 kg

DRUGS (6)
  1. PANTOPRAZOLE SODIUM [Concomitant]
     Dosage: 40MG PER DAY
     Route: 048
     Dates: start: 20110405
  2. PRIMPERAN TAB [Concomitant]
     Indication: NAUSEA
     Dosage: 30MG AS REQUIRED
     Route: 048
  3. TEMESTA [Concomitant]
     Indication: NAUSEA
     Dosage: 1MG AS REQUIRED
     Route: 048
     Dates: start: 20110126
  4. CISPLATIN [Suspect]
     Dosage: 53.3MG PER DAY
     Route: 042
     Dates: start: 20101229
  5. GEMCITABINE [Suspect]
     Dosage: 1600MG PER DAY
     Route: 042
     Dates: start: 20101228
  6. LAPATINIB [Suspect]
     Dosage: 1250MG PER DAY
     Route: 048
     Dates: start: 20101228

REACTIONS (1)
  - PYELONEPHRITIS [None]
